FAERS Safety Report 4493338-3 (Version None)
Quarter: 2004Q4

REPORT INFORMATION
  Report Type: 
  Country: None (occurrence: None)
  Receive Date: 20041102
  Receipt Date: 20041020
  Transmission Date: 20050328
  Serious: Yes (Death)
  Sender: FDA-Public Use
  Company Number: 2004045425

PATIENT
  Age: 42 Year
  Sex: Male

DRUGS (2)
  1. ZOLOFT [Suspect]
     Indication: ILL-DEFINED DISORDER
  2. TIAGABINE HYDROCHLORIDE (TIAGABINE HYDROCHLORIDE) [Suspect]
     Indication: ILL-DEFINED DISORDER
     Dosage: 8 MG (4 MG, 2 IN 1 D)

REACTIONS (1)
  - ACCIDENTAL OVERDOSE [None]
